FAERS Safety Report 23015167 (Version 1)
Quarter: 2023Q4

REPORT INFORMATION
  Report Type: Spontaneous
  Country: US (occurrence: US)
  Receive Date: 20231002
  Receipt Date: 20231002
  Transmission Date: 20240110
  Serious: Yes (Life-Threatening, Other)
  Sender: FDA-Public Use
  Company Number: US-PFIZER INC-PV202300162396

PATIENT
  Age: 29 Year
  Sex: Male

DRUGS (8)
  1. HYDROXYZINE PAMOATE [Suspect]
     Active Substance: HYDROXYZINE PAMOATE
     Indication: Angioedema
     Dosage: AS NEEDED
     Route: 048
  2. PANTOPRAZOLE [Suspect]
     Active Substance: PANTOPRAZOLE
     Indication: Reflux laryngitis
     Dosage: UNK
     Route: 048
  3. METHYLPREDNISOLONE ACETATE [Suspect]
     Active Substance: METHYLPREDNISOLONE ACETATE
     Indication: Angioedema
     Dosage: TAPER
  4. EPINEPHRINE [Suspect]
     Active Substance: EPINEPHRINE
     Indication: Angioedema
     Dosage: RACEMIC
  5. OMALIZUMAB [Suspect]
     Active Substance: OMALIZUMAB
     Indication: Angioedema
     Dosage: MONTHLY
     Route: 030
  6. FAMOTIDINE [Suspect]
     Active Substance: FAMOTIDINE
     Indication: Reflux laryngitis
     Dosage: UNK
     Route: 048
  7. DIPHENHYDRAMINE [Suspect]
     Active Substance: DIPHENHYDRAMINE
     Indication: Angioedema
     Dosage: TWICE THE FOLLOWING MONTH
     Route: 048
  8. OLOPATADINE [Suspect]
     Active Substance: OLOPATADINE
     Indication: Angioedema
     Dosage: 665 MCG/SPRAY
     Route: 045

REACTIONS (1)
  - Drug ineffective [Recovered/Resolved]
